FAERS Safety Report 5690832-4 (Version None)
Quarter: 2008Q2

REPORT INFORMATION
  Report Type: 
  Country: None (occurrence: None)
  Receive Date: 20080401
  Receipt Date: 20080326
  Transmission Date: 20081010
  Serious: Yes (Other)
  Sender: FDA-Public Use
  Company Number: B0514539A

PATIENT
  Age: 37 Year
  Sex: Female

DRUGS (1)
  1. VENTOLIN [Suspect]

REACTIONS (4)
  - AGGRESSION [None]
  - ANGER [None]
  - EUPHORIC MOOD [None]
  - TREMOR [None]
